FAERS Safety Report 22106127 (Version 1)
Quarter: 2023Q1

REPORT INFORMATION
  Report Type: Spontaneous
  Country: US (occurrence: US)
  Receive Date: 20230317
  Receipt Date: 20230317
  Transmission Date: 20230418
  Serious: Yes (Other)
  Sender: FDA-Public Use
  Company Number: US-SA-SAC20230314001220

PATIENT
  Age: 30 Year
  Sex: Male

DRUGS (4)
  1. ALPROLIX [Suspect]
     Active Substance: EFTRENONACOG ALFA
     Indication: Factor IX deficiency
     Dosage: INFUSE 7170 UNITS (6453-7887) SLOW IV PUSH EVERY 10 DAYS AS PROPHYLAXIS
     Route: 042
     Dates: start: 202202
  2. ALPROLIX [Suspect]
     Active Substance: EFTRENONACOG ALFA
     Indication: Factor IX deficiency
     Dosage: INFUSE 7170 UNITS (6453-7887) SLOW IV PUSH EVERY 10 DAYS AS PROPHYLAXIS
     Route: 042
     Dates: start: 202202
  3. ALPROLIX [Suspect]
     Active Substance: EFTRENONACOG ALFA
     Dosage: INFUSE 3585 UNITS (3227-3943) SLOW IV PUSH AS NEEDED FOR BLEEDING NOT CONTROLLED BY PROPHYLAXIS. ROU
     Route: 042
     Dates: start: 202202
  4. ALPROLIX [Suspect]
     Active Substance: EFTRENONACOG ALFA
     Dosage: INFUSE 3585 UNITS (3227-3943) SLOW IV PUSH AS NEEDED FOR BLEEDING NOT CONTROLLED BY PROPHYLAXIS. ROU
     Route: 042
     Dates: start: 202202

REACTIONS (1)
  - Haemorrhage [Not Recovered/Not Resolved]

NARRATIVE: CASE EVENT DATE: 20230201
